FAERS Safety Report 10182939 (Version 1)
Quarter: 2014Q2

REPORT INFORMATION
  Report Type: Spontaneous
  Country: US (occurrence: US)
  Receive Date: 20140520
  Receipt Date: 20140520
  Transmission Date: 20141212
  Serious: No
  Sender: FDA-Public Use
  Company Number: US-PFIZER INC-2014134803

PATIENT
  Age: 45 Year
  Sex: Female
  Weight: 70.3 kg

DRUGS (4)
  1. LYRICA [Suspect]
     Indication: NEURALGIA
     Dosage: 100 MG, 3X/DAY
     Dates: start: 2013
  2. LYRICA [Suspect]
     Indication: BURNING SENSATION
  3. OXYCONTIN [Concomitant]
     Indication: PAIN
     Dosage: 30 MG, 2X/DAY
  4. OXYCODONE [Concomitant]
     Indication: PAIN
     Dosage: 5 MG, 3X/DAY

REACTIONS (1)
  - Pain [Unknown]
